FAERS Safety Report 20633581 (Version 6)
Quarter: 2022Q3

REPORT INFORMATION
  Report Type: Spontaneous
  Country: US (occurrence: US)
  Receive Date: 20220324
  Receipt Date: 20220824
  Transmission Date: 20221027
  Serious: Yes (Hospitalization, Other)
  Sender: FDA-Public Use
  Company Number: US-ELI_LILLY_AND_COMPANY-US202203009669

PATIENT
  Age: 61 Year
  Sex: Female

DRUGS (2)
  1. TADALAFIL [Suspect]
     Active Substance: TADALAFIL
     Indication: Product used for unknown indication
     Dosage: UNK UNK, UNKNOWN
     Route: 065
  2. REMODULIN [Suspect]
     Active Substance: TREPROSTINIL
     Indication: Pulmonary arterial hypertension
     Dosage: 114NG/KG/MIN, DAILY
     Route: 058
     Dates: start: 20131017

REACTIONS (30)
  - Anxiety [Unknown]
  - Bone cancer [Unknown]
  - Drug withdrawal syndrome [Unknown]
  - Joint swelling [Unknown]
  - Lymphadenopathy [Unknown]
  - Neoplasm malignant [Unknown]
  - Nervousness [Unknown]
  - Renal cancer [Unknown]
  - Respiration abnormal [Unknown]
  - Scar [Unknown]
  - Skin tightness [Unknown]
  - Weight increased [Unknown]
  - Infusion site erythema [Unknown]
  - Infusion site pain [Unknown]
  - Cough [Unknown]
  - Nasopharyngitis [Unknown]
  - Asthenia [Unknown]
  - Headache [Unknown]
  - Peripheral swelling [Unknown]
  - Chest pain [Unknown]
  - Breast cancer [Unknown]
  - Musculoskeletal chest pain [Unknown]
  - Tenderness [Unknown]
  - Dry skin [Unknown]
  - Skin disorder [Unknown]
  - Skin discharge [Unknown]
  - Renal pain [Unknown]
  - Nasal congestion [Unknown]
  - Dyspnoea [Unknown]
  - Heart rate increased [Unknown]

NARRATIVE: CASE EVENT DATE: 20220314
